FAERS Safety Report 12634417 (Version 2)
Quarter: 2016Q3

REPORT INFORMATION
  Report Type: Spontaneous
  Country: US (occurrence: US)
  Receive Date: 20160808
  Receipt Date: 20160823
  Transmission Date: 20161109
  Serious: No
  Sender: FDA-Public Use
  Company Number: US-BAYER-2016-151713

PATIENT
  Sex: Female

DRUGS (2)
  1. CLIMARA PRO [Suspect]
     Active Substance: ESTRADIOL\LEVONORGESTREL
     Indication: SKIN DISORDER
     Dosage: UNK
     Route: 062
  2. CLIMARA PRO [Suspect]
     Active Substance: ESTRADIOL\LEVONORGESTREL
     Indication: SKIN DISORDER
     Dosage: UNK
     Route: 062

REACTIONS (7)
  - Product use issue [None]
  - Therapeutic response unexpected [None]
  - Product quality issue [None]
  - Expired device used [Not Recovered/Not Resolved]
  - Intentional product use issue [None]
  - Product packaging issue [None]
  - Product physical issue [None]
